FAERS Safety Report 19029626 (Version 1)
Quarter: 2021Q1

REPORT INFORMATION
  Report Type: Report from Study
  Country: None (occurrence: US)
  Receive Date: 20210318
  Receipt Date: 20210318
  Transmission Date: 20210420
  Serious: Yes (Hospitalization, Other)
  Sender: FDA-Public Use
  Company Number: US-ABBVIE-20K-163-3502574-00

PATIENT
  Age: 63 Year
  Sex: Female
  Weight: 65.38 kg

DRUGS (2)
  1. HUMIRA [Suspect]
     Active Substance: ADALIMUMAB
     Indication: RHEUMATOID ARTHRITIS
     Route: 058
     Dates: start: 2017, end: 202010
  2. SODIUM [Concomitant]
     Active Substance: SODIUM
     Indication: BONE DISORDER

REACTIONS (8)
  - Alopecia [Recovering/Resolving]
  - Inflammation [Recovered/Resolved]
  - Central nervous system infection [Recovered/Resolved]
  - Systemic lupus erythematosus [Not Recovered/Not Resolved]
  - Gait disturbance [Recovered/Resolved]
  - Lyme disease [Recovered/Resolved]
  - Head discomfort [Not Recovered/Not Resolved]
  - Arthralgia [Unknown]

NARRATIVE: CASE EVENT DATE: 202004
